FAERS Safety Report 5306087-6 (Version None)
Quarter: 2007Q2

REPORT INFORMATION
  Report Type: 
  Country: None (occurrence: None)
  Receive Date: 20070424
  Receipt Date: 20060411
  Transmission Date: 20071010
  Serious: Yes (Other)
  Sender: FDA-Public Use
  Company Number: US-BRISTOL-MYERS SQUIBB COMPANY-13343819

PATIENT
  Age: 20 Year
  Sex: Male
  Weight: 67 kg

DRUGS (7)
  1. CARBOPLATIN [Suspect]
     Indication: NASAL SINUS CANCER
     Route: 042
     Dates: start: 20060411, end: 20060411
  2. ANZEMET [Concomitant]
     Indication: PREMEDICATION
     Route: 042
  3. DECADRON [Concomitant]
     Indication: PREMEDICATION
     Route: 042
  4. TAXOL [Concomitant]
  5. VICODIN [Concomitant]
  6. MOTRIN [Concomitant]
  7. COMPAZINE [Concomitant]

REACTIONS (1)
  - HYPERSENSITIVITY [None]
